FAERS Safety Report 6941094-9 (Version None)
Quarter: 2010Q3

REPORT INFORMATION
  Report Type: 
  Country: None (occurrence: None)
  Receive Date: 20100825
  Receipt Date: 20100813
  Transmission Date: 20110219
  Serious: Yes (Other)
  Sender: FDA-Public Use
  Company Number: US-PFIZER INC-2010102701

PATIENT
  Sex: Female

DRUGS (2)
  1. GLIPIZIDE [Suspect]
     Dosage: 4 X 5MG TABLETS TWICE A DAY
  2. GLIPIZIDE [Suspect]
     Dosage: 2 X 10 MG TABLETS 2XDAY

REACTIONS (2)
  - BLOOD GLUCOSE INCREASED [None]
  - DRUG INEFFECTIVE [None]
